FAERS Safety Report 16965708 (Version 1)
Quarter: 2019Q4

REPORT INFORMATION
  Report Type: Spontaneous
  Country: SE (occurrence: SE)
  Receive Date: 20191028
  Receipt Date: 20191028
  Transmission Date: 20200122
  Serious: Yes (Other)
  Sender: FDA-Public Use
  Company Number: SE-TEVA-2019-SE-1128931

PATIENT
  Age: 84 Year
  Sex: Male

DRUGS (1)
  1. ENALAPRIL ACTAVIS [Suspect]
     Active Substance: ENALAPRIL
     Route: 065
     Dates: end: 201307

REACTIONS (4)
  - Glaucoma [Unknown]
  - Visual impairment [Unknown]
  - Macular degeneration [Unknown]
  - Skin irritation [Unknown]

NARRATIVE: CASE EVENT DATE: 201306
